FAERS Safety Report 10864112 (Version 2)
Quarter: 2015Q1

REPORT INFORMATION
  Report Type: Spontaneous
  Country: US (occurrence: US)
  Receive Date: 20150224
  Receipt Date: 20150302
  Transmission Date: 20150721
  Serious: Yes (Other)
  Sender: FDA-Public Use
  Company Number: US-PFIZER INC-2015064328

PATIENT
  Age: 59 Year
  Sex: Female
  Weight: 127 kg

DRUGS (13)
  1. VITAMINS NOS [Concomitant]
     Active Substance: VITAMINS
     Dosage: UNK
  2. PROMETHAZINE [Concomitant]
     Active Substance: PROMETHAZINE\PROMETHAZINE HYDROCHLORIDE
     Indication: NAUSEA
     Dosage: 12.5 MG, AS NEEDED (EVERY 6-8 HOURS)
     Route: 048
  3. ETODOLAC. [Concomitant]
     Active Substance: ETODOLAC
     Indication: PAIN
     Dosage: 300 MG, 3X/DAY
     Route: 048
  4. HYDROCHLOROTHIAZIDE. [Concomitant]
     Active Substance: HYDROCHLOROTHIAZIDE
     Indication: BLOOD PRESSURE INCREASED
  5. HYDROCODONE [Concomitant]
     Active Substance: HYDROCODONE
     Indication: PAIN
     Dosage: UNK
     Route: 048
  6. OMEPRAZOLE. [Concomitant]
     Active Substance: OMEPRAZOLE
     Indication: ABDOMINAL DISCOMFORT
     Dosage: 40 MG, DAILY (20 MG TWO CAPSULES)
     Route: 048
  7. HYDROCHLOROTHIAZIDE. [Concomitant]
     Active Substance: HYDROCHLOROTHIAZIDE
     Indication: DIZZINESS
     Dosage: 12.5 MG, (RARELY, ONLY ONCE IN A WHILE)
  8. LYRICA [Suspect]
     Active Substance: PREGABALIN
     Indication: BACK PAIN
     Dosage: 50 MG, 3X/DAY
  9. LYRICA [Suspect]
     Active Substance: PREGABALIN
     Indication: ARTHRITIS
     Dosage: 75 MG, 3X/DAY
     Dates: start: 201411
  10. LYRICA [Suspect]
     Active Substance: PREGABALIN
     Indication: FIBROMYALGIA
  11. TRIAMTERENE. [Concomitant]
     Active Substance: TRIAMTERENE
     Dosage: UNK
  12. TIZANIDINE HYDROCHLORIDE. [Concomitant]
     Active Substance: TIZANIDINE HYDROCHLORIDE
     Indication: PAIN
     Dosage: 2 MG, 3X/DAY, (SOMETIMES DOES NOT TAKE IT)
     Route: 048
  13. NAPROXEN. [Concomitant]
     Active Substance: NAPROXEN
     Dosage: 500 MG, 2X/DAY (BUT SOMETIMES SHE DOES NOT TAKE IT)

REACTIONS (12)
  - Anxiety [Not Recovered/Not Resolved]
  - Dry mouth [Not Recovered/Not Resolved]
  - Middle ear effusion [Unknown]
  - Product use issue [Not Recovered/Not Resolved]
  - Motor dysfunction [Unknown]
  - Dizziness [Not Recovered/Not Resolved]
  - Vision blurred [Not Recovered/Not Resolved]
  - Drug ineffective [Unknown]
  - Psychomotor hyperactivity [Not Recovered/Not Resolved]
  - Weight increased [Unknown]
  - Meniere^s disease [Not Recovered/Not Resolved]
  - Somnolence [Unknown]

NARRATIVE: CASE EVENT DATE: 201411
